FAERS Safety Report 8201748-3 (Version None)
Quarter: 2012Q1

REPORT INFORMATION
  Report Type: 
  Country: None (occurrence: None)
  Receive Date: 20120312
  Receipt Date: 20120306
  Transmission Date: 20120608
  Serious: Yes (Other)
  Sender: FDA-Public Use
  Company Number: DE-ROCHE-1047146

PATIENT
  Sex: Male
  Weight: 62 kg

DRUGS (2)
  1. MIRCERA [Suspect]
     Route: 042
     Dates: end: 20120205
  2. MIRCERA [Suspect]
     Indication: NEPHROPATHY
     Route: 042
     Dates: start: 20111209

REACTIONS (1)
  - HAEMOGLOBIN DECREASED [None]
